FAERS Safety Report 24311877 (Version 1)
Quarter: 2024Q3

REPORT INFORMATION
  Report Type: Spontaneous
  Country: US (occurrence: None)
  Receive Date: 20240912
  Receipt Date: 20240912
  Transmission Date: 20241017
  Serious: Yes (Hospitalization)
  Sender: Public
  Company Number: None

PATIENT
  Age: 76 Year
  Sex: Female
  Weight: 35.9 kg

DRUGS (1)
  1. LUTETIUM OXODOTREOTIDE LU-177 [Suspect]
     Active Substance: LUTETIUM OXODOTREOTIDE LU-177
     Dates: end: 20240807

REACTIONS (6)
  - Feeling abnormal [None]
  - Decreased appetite [None]
  - Weight decreased [None]
  - Blood potassium increased [None]
  - Haemoglobin decreased [None]
  - Blood creatinine decreased [None]

NARRATIVE: CASE EVENT DATE: 20240905
